FAERS Safety Report 5037848-9 (Version None)
Quarter: 2006Q2

REPORT INFORMATION
  Report Type: 
  Country: None (occurrence: None)
  Receive Date: 20060613
  Receipt Date: 20060330
  Transmission Date: 20061013
  Serious: Yes (Other)
  Sender: FDA-Public Use
  Company Number: US-JNJFOC-20060200248

PATIENT
  Sex: Female

DRUGS (1)
  1. ORTHO EVRA [Suspect]
     Indication: DRUG USE FOR UNKNOWN INDICATION
     Dosage: TRANSDERMAL
     Route: 062
     Dates: start: 20050701

REACTIONS (7)
  - ABDOMINAL PAIN [None]
  - BLOOD URINE PRESENT [None]
  - FEAR [None]
  - MENTAL STATUS CHANGES [None]
  - PAIN [None]
  - SOMNOLENCE [None]
  - THROMBOSIS [None]
